FAERS Safety Report 11253008 (Version 2)
Quarter: 2016Q1

REPORT INFORMATION
  Report Type: Spontaneous
  Country: IT (occurrence: IT)
  Receive Date: 20150708
  Receipt Date: 20160203
  Transmission Date: 20160525
  Serious: Yes (Hospitalization)
  Sender: FDA-Public Use
  Company Number: IT-ABBVIE-15P-083-1422899-00

PATIENT
  Age: 73 Year
  Sex: Female

DRUGS (4)
  1. ANTACAL [Concomitant]
     Active Substance: AMLODIPINE BESYLATE
     Indication: PRODUCT USED FOR UNKNOWN INDICATION
  2. FULCROSUPRA [Suspect]
     Active Substance: FENOFIBRATE
     Indication: DYSLIPIDAEMIA
     Route: 048
  3. VALPRESSION [Concomitant]
     Active Substance: VALSARTAN
     Indication: PRODUCT USED FOR UNKNOWN INDICATION
  4. BRIVIRAC [Suspect]
     Active Substance: BRIVUDINE
     Indication: HERPES ZOSTER
     Route: 048
     Dates: start: 20150613, end: 20150622

REACTIONS (3)
  - Asthenia [Unknown]
  - Vomiting [Unknown]
  - Rhabdomyolysis [Unknown]

NARRATIVE: CASE EVENT DATE: 20150622
